FAERS Safety Report 25202516 (Version 1)
Quarter: 2025Q2

REPORT INFORMATION
  Report Type: Spontaneous
  Country: US (occurrence: US)
  Receive Date: 20250416
  Receipt Date: 20250416
  Transmission Date: 20250717
  Serious: Yes (Other)
  Sender: MYLAN
  Company Number: US-MYLANLABS-2025M1032326

PATIENT
  Age: 54 Year
  Sex: Female

DRUGS (2)
  1. VERAPAMIL [Suspect]
     Active Substance: VERAPAMIL HYDROCHLORIDE
     Indication: Bundle branch block left
  2. IVABRADINE [Suspect]
     Active Substance: IVABRADINE
     Indication: Bundle branch block left

REACTIONS (1)
  - Drug ineffective [Unknown]
